FAERS Safety Report 8620336-8 (Version None)
Quarter: 2012Q3

REPORT INFORMATION
  Report Type: 
  Country: None (occurrence: None)
  Receive Date: 20120820
  Receipt Date: 20120820
  Transmission Date: 20120928
  Serious: Yes (Disabling, Other)
  Sender: FDA-Public Use
  Company Number: None

PATIENT
  Age: 25 Year
  Sex: Female
  Weight: 61.2356 kg

DRUGS (1)
  1. REGLAN [Suspect]
     Indication: MIGRAINE
     Dosage: IV INJECTION ONCE
     Dates: start: 20120813, end: 20120813

REACTIONS (15)
  - PANIC ATTACK [None]
  - HEART RATE INCREASED [None]
  - DISSOCIATION [None]
  - DYSKINESIA [None]
  - PRESYNCOPE [None]
  - SCREAMING [None]
  - HYPOAESTHESIA [None]
  - DIZZINESS [None]
  - FEAR OF DEATH [None]
  - INJURY [None]
  - CONVULSION [None]
  - CRYING [None]
  - SUICIDAL IDEATION [None]
  - TARDIVE DYSKINESIA [None]
  - PARANOIA [None]
